FAERS Safety Report 18436258 (Version 4)
Quarter: 2020Q4

REPORT INFORMATION
  Report Type: Report from Study
  Country: US (occurrence: US)
  Receive Date: 20201028
  Receipt Date: 20201229
  Transmission Date: 20210114
  Serious: Yes (Other)
  Sender: FDA-Public Use
  Company Number: US-JNJFOC-20201030691

PATIENT
  Age: 60 Year
  Sex: Male
  Weight: 127.12 kg

DRUGS (11)
  1. CLONIDINE. [Concomitant]
     Active Substance: CLONIDINE
     Dosage: TOOK TWO TABLETS AS HE FORGOT THAT HE TOOK ONE ALREADY (ALSO REPORTED AS 1MG TOTAL)
     Dates: start: 20201015
  2. ZOFRAN [Concomitant]
     Active Substance: ONDANSETRON HYDROCHLORIDE
     Indication: MAJOR DEPRESSION
  3. WELLBUTRIN [Concomitant]
     Active Substance: BUPROPION HYDROCHLORIDE
     Indication: MAJOR DEPRESSION
  4. SPRAVATO [Suspect]
     Active Substance: ESKETAMINE
     Dosage: 84 MG: TOTAL DOSES: 4
     Dates: start: 20200915, end: 20200929
  5. SPRAVATO [Suspect]
     Active Substance: ESKETAMINE
     Dates: start: 20201015, end: 20201015
  6. SPRAVATO [Suspect]
     Active Substance: ESKETAMINE
     Indication: DEPRESSION
     Dosage: 56 MG; TOTAL DOSES: 4
     Dates: start: 20200828, end: 20200910
  7. ADDERALL [Concomitant]
     Active Substance: AMPHETAMINE ASPARTATE\AMPHETAMINE SULFATE\DEXTROAMPHETAMINE SACCHARATE\DEXTROAMPHETAMINE SULFATE
     Indication: MAJOR DEPRESSION
  8. CLONIDINE. [Concomitant]
     Active Substance: CLONIDINE
  9. ATIVAN [Concomitant]
     Active Substance: LORAZEPAM
     Indication: MAJOR DEPRESSION
  10. DOXEPIN [Concomitant]
     Active Substance: DOXEPIN
     Indication: MAJOR DEPRESSION
  11. DULOXETINE. [Concomitant]
     Active Substance: DULOXETINE
     Indication: MAJOR DEPRESSION

REACTIONS (2)
  - Sedation [Recovered/Resolved]
  - Hypotension [Recovered/Resolved]

NARRATIVE: CASE EVENT DATE: 20201015
